FAERS Safety Report 16113446 (Version 3)
Quarter: 2019Q3

REPORT INFORMATION
  Report Type: Spontaneous
  Country: US (occurrence: US)
  Receive Date: 20190325
  Receipt Date: 20190730
  Transmission Date: 20191004
  Serious: No
  Sender: FDA-Public Use
  Company Number: US-PFIZER INC-2019122434

PATIENT
  Age: 56 Year
  Sex: Female

DRUGS (1)
  1. CELEBREX [Suspect]
     Active Substance: CELECOXIB
     Indication: INTERVERTEBRAL DISC DEGENERATION
     Dosage: UNK
     Route: 048
     Dates: start: 2015, end: 2015

REACTIONS (3)
  - Drug hypersensitivity [Unknown]
  - Pain [Unknown]
  - Pruritus [Unknown]

NARRATIVE: CASE EVENT DATE: 2015
